FAERS Safety Report 9826335 (Version 1)
Quarter: 2013Q4

REPORT INFORMATION
  Report Type: Spontaneous
  Country: GB (occurrence: None)
  Receive Date: 20131112
  Receipt Date: 20131112
  Transmission Date: 20140711
  Serious: Yes (Life-Threatening, Hospitalization)
  Sender: FDA-Public Use
  Company Number: 2012-01883

PATIENT
  Age: 59 Year
  Sex: Male
  Weight: 106 kg

DRUGS (5)
  1. LISINOPRIL [Suspect]
     Indication: RENAL IMPAIRMENT
     Route: 048
     Dates: start: 20121128, end: 20121129
  2. ASPIRIN [Concomitant]
  3. OMEPRAZOLE [Concomitant]
  4. SIMVASTATIN [Concomitant]
  5. THIAMINE [Concomitant]

REACTIONS (1)
  - Angioedema [None]
